FAERS Safety Report 22270885 (Version 1)
Quarter: 2023Q2

REPORT INFORMATION
  Report Type: Spontaneous
  Country: US (occurrence: None)
  Receive Date: 20230428
  Receipt Date: 20230428
  Transmission Date: 20230721
  Serious: Yes (Hospitalization)
  Sender: FDA-Public Use
  Company Number: None

PATIENT
  Age: 50 Year
  Sex: Female

DRUGS (17)
  1. OPSUMIT [Suspect]
     Active Substance: MACITENTAN
     Indication: Pulmonary hypertension
     Dosage: FREQUENCY : DAILY;?
     Route: 048
     Dates: start: 20191206
  2. SILDENAFIL [Concomitant]
     Active Substance: SILDENAFIL
  3. Teoprostinil [Concomitant]
  4. NORCO [Concomitant]
     Active Substance: ACETAMINOPHEN\HYDROCODONE BITARTRATE
  5. TORSEMIDE [Concomitant]
     Active Substance: TORSEMIDE
  6. LOPERAMIDE [Concomitant]
     Active Substance: LOPERAMIDE
  7. ESCITALOPRAM [Concomitant]
     Active Substance: ESCITALOPRAM OXALATE
  8. SPIRONOLACTONE [Concomitant]
     Active Substance: SPIRONOLACTONE
  9. Aripiprozole [Concomitant]
  10. PANTOPRAZOLE [Concomitant]
     Active Substance: PANTOPRAZOLE
  11. LAMOTRIGINE [Concomitant]
     Active Substance: LAMOTRIGINE
  12. ONDANSETRON [Concomitant]
     Active Substance: ONDANSETRON
  13. HYDROCHLOROTHIAZIDE [Concomitant]
     Active Substance: HYDROCHLOROTHIAZIDE
  14. QUETIAPINE [Concomitant]
     Active Substance: QUETIAPINE
  15. VARENICLINE [Concomitant]
     Active Substance: VARENICLINE
  16. NICORETTE [Concomitant]
     Active Substance: NICOTINE
  17. WIXELA INHUB [Concomitant]
     Active Substance: FLUTICASONE PROPIONATE\SALMETEROL XINAFOATE

REACTIONS (2)
  - Dyspnoea [None]
  - Weight increased [None]

NARRATIVE: CASE EVENT DATE: 20230406
